FAERS Safety Report 8172556-7 (Version None)
Quarter: 2012Q1

REPORT INFORMATION
  Report Type: 
  Country: None (occurrence: None)
  Receive Date: 20120223
  Receipt Date: 20120216
  Transmission Date: 20120608
  Serious: Yes (Other)
  Sender: FDA-Public Use
  Company Number: ADR-2012-00371

PATIENT
  Age: 6 Year
  Sex: Female

DRUGS (1)
  1. BACLOFEN [Suspect]

REACTIONS (4)
  - WOUND INFECTION [None]
  - PYREXIA [None]
  - IMPLANT SITE INFECTION [None]
  - BLOOD CREATINE PHOSPHOKINASE INCREASED [None]
